FAERS Safety Report 21999431 (Version 1)
Quarter: 2023Q1

REPORT INFORMATION
  Report Type: Spontaneous
  Country: FR (occurrence: FR)
  Receive Date: 20230216
  Receipt Date: 20230216
  Transmission Date: 20230418
  Serious: Yes (Hospitalization)
  Sender: FDA-Public Use
  Company Number: None

PATIENT
  Age: 17 Year
  Sex: Female

DRUGS (1)
  1. XANAX [Suspect]
     Active Substance: ALPRAZOLAM
     Indication: Product used for unknown indication
     Dosage: ONE BOX OVER 24H/WEEK
     Route: 048
     Dates: start: 202211

REACTIONS (1)
  - Substance abuse [Unknown]

NARRATIVE: CASE EVENT DATE: 20221101
